FAERS Safety Report 13107272 (Version 2)
Quarter: 2017Q4

REPORT INFORMATION
  Report Type: Spontaneous
  Country: US (occurrence: US)
  Receive Date: 20170112
  Receipt Date: 20171221
  Transmission Date: 20180320
  Serious: Yes (Other)
  Sender: FDA-Public Use
  Company Number: US-BRISTOL-MYERS SQUIBB COMPANY-BMS-2016-112886

PATIENT
  Age: 66 Year
  Sex: Male

DRUGS (6)
  1. RIBAVIRIN. [Suspect]
     Active Substance: RIBAVIRIN
     Indication: CHRONIC HEPATITIS C
     Route: 065
  2. RIBAVIRIN. [Suspect]
     Active Substance: RIBAVIRIN
     Indication: PRODUCT USED FOR UNKNOWN INDICATION
     Dosage: 600 MG, BID
     Route: 065
  3. ENOXAPARIN [Concomitant]
     Active Substance: ENOXAPARIN
     Indication: ANTICOAGULANT THERAPY
     Dosage: 100 MG, UNK
     Route: 058
     Dates: start: 2015
  4. WARFARIN SODIUM. [Suspect]
     Active Substance: WARFARIN SODIUM
     Indication: MITRAL VALVE REPLACEMENT
     Dosage: 30 MG, UNK
     Route: 065
     Dates: start: 2011
  5. WARFARIN SODIUM. [Interacting]
     Active Substance: WARFARIN SODIUM
     Indication: ATRIAL FIBRILLATION
     Dosage: 75 MG, UNK
     Route: 065
  6. LEDIPASVIR W/SOFOSBUVIR [Interacting]
     Active Substance: LEDIPASVIR\SOFOSBUVIR
     Indication: CHRONIC HEPATITIS C
     Dosage: UNK
     Route: 065
     Dates: start: 2015

REACTIONS (4)
  - Drug interaction [Unknown]
  - Anticoagulation drug level above therapeutic [Unknown]
  - Anticoagulation drug level below therapeutic [Unknown]
  - Accidental overdose [Unknown]

NARRATIVE: CASE EVENT DATE: 2015
